FAERS Safety Report 23568864 (Version 1)
Quarter: 2024Q1

REPORT INFORMATION
  Report Type: Spontaneous
  Country: US (occurrence: US)
  Receive Date: 20240227
  Receipt Date: 20240227
  Transmission Date: 20240409
  Serious: Yes (Hospitalization)
  Sender: FDA-Public Use
  Company Number: US-BRISTOL-MYERS SQUIBB COMPANY-2024-030640

PATIENT
  Age: 67 Year
  Sex: Male

DRUGS (1)
  1. REVLIMID [Suspect]
     Active Substance: LENALIDOMIDE
     Indication: Prostate cancer stage 0
     Dosage: FREQUENCY: QD FOR 21 DAYS THEN 7 DAYS OFF.
     Route: 048
     Dates: start: 20191213

REACTIONS (2)
  - Hospitalisation [Unknown]
  - Off label use [Unknown]
